FAERS Safety Report 24345359 (Version 2)
Quarter: 2024Q4

REPORT INFORMATION
  Report Type: Report from Study
  Country: US (occurrence: US)
  Receive Date: 20240920
  Receipt Date: 20241025
  Transmission Date: 20250115
  Serious: No
  Sender: NOVARTIS
  Company Number: US-002147023-NVSC2024US188106

PATIENT
  Sex: Male

DRUGS (1)
  1. LEQVIO [Suspect]
     Active Substance: INCLISIRAN SODIUM
     Indication: Hyperlipidaemia
     Dosage: 284 MG Q6 MONTHS
     Route: 058
     Dates: start: 20240726

REACTIONS (3)
  - Pain in extremity [Unknown]
  - Oedema [Unknown]
  - Arthralgia [Unknown]
